FAERS Safety Report 16787802 (Version 2)
Quarter: 2020Q3

REPORT INFORMATION
  Report Type: Spontaneous
  Country: SE (occurrence: SE)
  Receive Date: 20190909
  Receipt Date: 20200908
  Transmission Date: 20201102
  Serious: Yes (Hospitalization)
  Sender: FDA-Public Use
  Company Number: SE-ROCHE-2394669

PATIENT
  Age: 73 Year
  Sex: Male

DRUGS (20)
  1. ACETYLSALICYLSYRA [Concomitant]
     Active Substance: ASPIRIN
     Dates: start: 20190630
  2. ATORBIR [Concomitant]
     Active Substance: ATORVASTATIN
     Dates: start: 20190731
  3. METOPROLOL SANDOZ [Concomitant]
     Active Substance: METOPROLOL
     Dates: start: 20190429
  4. NOVOMIX 30 FLEXPEN [Concomitant]
     Active Substance: INSULIN ASPART
     Dates: start: 20190509
  5. KALCIPOS?D [Concomitant]
     Active Substance: CALCIUM CARBONATE\CHOLECALCIFEROL
     Dates: start: 20190429
  6. OXYNORM [Concomitant]
     Active Substance: OXYCODONE HYDROCHLORIDE
     Dates: start: 20190530
  7. DUROFERON [Concomitant]
     Active Substance: FERROUS SULFATE
     Dates: start: 20190514
  8. NOVORAPID [Concomitant]
     Active Substance: INSULIN ASPART
     Dates: start: 20190430
  9. KALEORID [Concomitant]
     Active Substance: POTASSIUM CHLORIDE
     Dates: start: 20190701
  10. PREDNISOLONE. [Concomitant]
     Active Substance: PREDNISOLONE
     Dates: start: 20190425
  11. ALLOPURINOL. [Concomitant]
     Active Substance: ALLOPURINOL
     Dates: start: 20170816
  12. GIONA [Concomitant]
     Active Substance: BUDESONIDE
     Dates: start: 20170816
  13. ROACTEMRA [Suspect]
     Active Substance: TOCILIZUMAB
     Indication: GIANT CELL ARTERITIS
     Dosage: MOST RECENT DOSE ON 24/JUN/2019
     Route: 058
     Dates: start: 20190529
  14. FURIX (SWEDEN) [Concomitant]
     Dates: start: 20190731
  15. RAMIPRIL HEXAL [Concomitant]
     Active Substance: RAMIPRIL
     Dates: start: 20190429
  16. TOUJEO [Concomitant]
     Active Substance: INSULIN GLARGINE
     Dates: start: 20190502
  17. TARGINIQ ER [Concomitant]
     Active Substance: NALOXONE HYDROCHLORIDE\OXYCODONE HYDROCHLORIDE
     Dates: start: 20190630
  18. CLOPIDOGREL [Concomitant]
     Active Substance: CLOPIDOGREL BISULFATE
     Dates: start: 20190517
  19. METFORMIN [Concomitant]
     Active Substance: METFORMIN HYDROCHLORIDE
     Dates: start: 20190429
  20. OMEPRAZOL [Concomitant]
     Active Substance: OMEPRAZOLE
     Dates: start: 20190425

REACTIONS (2)
  - Necrotising panniculitis [Not Recovered/Not Resolved]
  - Polyarteritis nodosa [Not Recovered/Not Resolved]

NARRATIVE: CASE EVENT DATE: 20190731
